FAERS Safety Report 15664533 (Version 2)
Quarter: 2018Q4

REPORT INFORMATION
  Report Type: Spontaneous
  Country: US (occurrence: US)
  Receive Date: 20181128
  Receipt Date: 20181130
  Transmission Date: 20190205
  Serious: Yes (Hospitalization)
  Sender: FDA-Public Use
  Company Number: US-FRESENIUS MEDICAL CARE RENAL THERAPIES GROUP-FMC-1811-002033

PATIENT
  Sex: Male
  Weight: 77.18 kg

DRUGS (7)
  1. DELFLEX WITH DEXTROSE 2.5% LOW MAGNESIUM LOW CALCIUM [Suspect]
     Active Substance: CALCIUM CHLORIDE\DEXTROSE\MAGNESIUM CHLORIDE\SODIUM CHLORIDE\SODIUM LACTATE
     Indication: END STAGE RENAL DISEASE
     Dosage: FOUR EXCHANGES OF 2000 ML, PLUS A LAST FILL OF 1000ML AND A DAY TIME EXCHANGE OF 2000 ML FOR A TOTAL
  2. FUROSEMIDE. [Concomitant]
     Active Substance: FUROSEMIDE
  3. CARVEDILOL. [Concomitant]
     Active Substance: CARVEDILOL
  4. INSULIN [Concomitant]
     Active Substance: INSULIN NOS
  5. ISONIAZID. [Concomitant]
     Active Substance: ISONIAZID
  6. HYDRALAZINE [Concomitant]
     Active Substance: HYDRALAZINE HYDROCHLORIDE
  7. LOSARTAN. [Concomitant]
     Active Substance: LOSARTAN

REACTIONS (3)
  - Ultrafiltration failure [Recovering/Resolving]
  - Myocardial infarction [Recovering/Resolving]
  - Pulmonary oedema [Recovering/Resolving]
